FAERS Safety Report 16358753 (Version 2)
Quarter: 2019Q3

REPORT INFORMATION
  Report Type: Spontaneous
  Country: JP (occurrence: JP)
  Receive Date: 20190527
  Receipt Date: 20190731
  Transmission Date: 20191004
  Serious: Yes (Hospitalization)
  Sender: FDA-Public Use
  Company Number: PHJP2019JP005658

PATIENT

DRUGS (2)
  1. SANDOSTATIN [Suspect]
     Active Substance: OCTREOTIDE ACETATE
     Indication: ABDOMINAL DISCOMFORT
  2. SANDOSTATIN [Suspect]
     Active Substance: OCTREOTIDE ACETATE
     Indication: GASTROINTESTINAL OBSTRUCTION
     Dosage: UNK
     Route: 065

REACTIONS (3)
  - Metastases to bone [Unknown]
  - Metastases to peritoneum [Unknown]
  - Product use in unapproved indication [Unknown]
